FAERS Safety Report 6332959-X (Version None)
Quarter: 2009Q3

REPORT INFORMATION
  Report Type: 
  Country: None (occurrence: None)
  Receive Date: 20090828
  Receipt Date: 20090818
  Transmission Date: 20100115
  Serious: Yes (Other)
  Sender: FDA-Public Use
  Company Number: PHEH2009US09530

PATIENT
  Sex: Male

DRUGS (3)
  1. EXJADE [Suspect]
     Indication: MYELODYSPLASTIC SYNDROME
  2. REVLIMID [Suspect]
  3. VELCADE [Suspect]

REACTIONS (4)
  - BLOOD CREATININE INCREASED [None]
  - MULTIPLE MYELOMA [None]
  - SERUM FERRITIN INCREASED [None]
  - TRANSFERRIN SATURATION DECREASED [None]
